FAERS Safety Report 21728743 (Version 1)
Quarter: 2022Q4

REPORT INFORMATION
  Report Type: Spontaneous
  Country: US (occurrence: None)
  Receive Date: 20221213
  Receipt Date: 20221213
  Transmission Date: 20230113
  Serious: Yes (Other)
  Sender: FDA-Public Use
  Company Number: None

PATIENT
  Age: 42 Year
  Sex: Female
  Weight: 113.4 kg

DRUGS (1)
  1. BUPRENORPHINE AND NALOXONE (BUPRENORPHINE\NALOXONE) [Suspect]
     Active Substance: BUPRENORPHINE\NALOXONE
     Indication: Drug abuse
     Dates: start: 2015

REACTIONS (2)
  - Drug ineffective [None]
  - Rash [None]
